FAERS Safety Report 4483576-8 (Version None)
Quarter: 2004Q4

REPORT INFORMATION
  Report Type: 
  Country: None (occurrence: None)
  Receive Date: 20041025
  Receipt Date: 20040929
  Transmission Date: 20050328
  Serious: Yes (Hospitalization)
  Sender: FDA-Public Use
  Company Number: 200413619FR

PATIENT
  Age: 56 Year
  Sex: Female

DRUGS (14)
  1. ARAVA [Suspect]
     Indication: RHEUMATOID ARTHRITIS
     Route: 048
     Dates: start: 20011001, end: 20040630
  2. TOPALGIC [Suspect]
     Indication: RHEUMATOID ARTHRITIS
     Route: 048
  3. CORTANCYL [Suspect]
     Route: 048
  4. DUPHALAC [Suspect]
     Route: 048
  5. JOSIR [Suspect]
     Route: 048
     Dates: end: 20040601
  6. ACTONEL [Suspect]
     Route: 048
  7. TENORMIN [Concomitant]
     Route: 048
  8. LUTERAN [Concomitant]
     Route: 048
  9. ALDACTONE [Concomitant]
     Route: 048
  10. MOPRAL [Concomitant]
     Route: 048
  11. PROZAC [Concomitant]
     Route: 048
  12. DERMESTRIL ^OPFERMANN^ [Concomitant]
     Route: 062
  13. ACETAMINOPHEN [Concomitant]
     Route: 048
  14. DIFFU K [Concomitant]
     Route: 048

REACTIONS (9)
  - ALANINE AMINOTRANSFERASE INCREASED [None]
  - ARTHRITIS BACTERIAL [None]
  - ASPARTATE AMINOTRANSFERASE INCREASED [None]
  - BLOOD ALKALINE PHOSPHATASE INCREASED [None]
  - GAMMA-GLUTAMYLTRANSFERASE INCREASED [None]
  - HEPATIC TRAUMA [None]
  - LOCALISED INFECTION [None]
  - OSTEITIS [None]
  - PROTHROMBIN TIME SHORTENED [None]
